FAERS Safety Report 8479950-5 (Version None)
Quarter: 2012Q2

REPORT INFORMATION
  Report Type: 
  Country: None (occurrence: None)
  Receive Date: 20120629
  Receipt Date: 20120620
  Transmission Date: 20120825
  Serious: Yes (Hospitalization, Other)
  Sender: FDA-Public Use
  Company Number: NL-MEDIMMUNE-MEDI-0012354

PATIENT
  Age: 13 Month
  Sex: Male
  Weight: 8 kg

DRUGS (5)
  1. SYNAGIS [Suspect]
     Indication: ANTIVIRAL PROPHYLAXIS
     Route: 030
     Dates: start: 20100903, end: 20100903
  2. SYNAGIS [Suspect]
     Route: 030
     Dates: start: 20101004, end: 20101004
  3. SYNAGIS [Suspect]
     Route: 030
     Dates: start: 20101101, end: 20101101
  4. SYNAGIS [Suspect]
     Route: 030
     Dates: start: 20101228
  5. SYNAGIS [Suspect]
     Route: 030
     Dates: start: 20110124, end: 20110124

REACTIONS (4)
  - INFANTILE SPITTING UP [None]
  - COUGH [None]
  - RESPIRATORY SYNCYTIAL VIRUS TEST POSITIVE [None]
  - DYSPNOEA [None]
